FAERS Safety Report 10015993 (Version 1)
Quarter: 2014Q1

REPORT INFORMATION
  Report Type: Spontaneous
  Country: EC (occurrence: EC)
  Receive Date: 20140317
  Receipt Date: 20140317
  Transmission Date: 20141002
  Serious: Yes (Death, Other)
  Sender: FDA-Public Use
  Company Number: EC-PFIZER INC-2014075504

PATIENT
  Age: 85 Year
  Sex: Female

DRUGS (2)
  1. NORVASC [Suspect]
     Dosage: 10 MG, 1X/DAY, AT NIGHT
     Route: 048
  2. LIPITOR [Concomitant]
     Indication: DYSLIPIDAEMIA
     Dosage: 20 MG, A HALF OF TABLET OF 40MG, AT NIGHT
     Route: 048

REACTIONS (2)
  - Cerebrovascular accident [Fatal]
  - Blood pressure increased [Not Recovered/Not Resolved]
